FAERS Safety Report 15936633 (Version 1)
Quarter: 2019Q1

REPORT INFORMATION
  Report Type: Spontaneous
  Country: US (occurrence: US)
  Receive Date: 20190207
  Receipt Date: 20190207
  Transmission Date: 20190417
  Serious: No
  Sender: FDA-Public Use
  Company Number: None

PATIENT
  Age: 61 Year
  Sex: Female
  Weight: 66.15 kg

DRUGS (1)
  1. PENNSAID [Suspect]
     Active Substance: DICLOFENAC SODIUM
     Indication: TENDON PAIN
     Dosage: ?          OTHER STRENGTH:2%;QUANTITY:2 OUNCE(S);?
     Route: 061
     Dates: start: 20190201, end: 20190204

REACTIONS (1)
  - Skin reaction [None]

NARRATIVE: CASE EVENT DATE: 20190204
